FAERS Safety Report 17818896 (Version 1)
Quarter: 2020Q2

REPORT INFORMATION
  Report Type: Spontaneous
  Country: FR (occurrence: FR)
  Receive Date: 20200522
  Receipt Date: 20200522
  Transmission Date: 20200714
  Serious: Yes (Other)
  Sender: FDA-Public Use
  Company Number: FR-ACCORD-182799

PATIENT
  Age: 71 Year
  Sex: Female

DRUGS (2)
  1. CARBOPLATIN ACCORD [Suspect]
     Active Substance: CARBOPLATIN
     Indication: ENDOMETRIAL ADENOCARCINOMA
     Dosage: STRENGTH: 10 MG/ML
     Route: 042
     Dates: start: 20191030, end: 20191030
  2. PACLITAXEL ACCORD [Suspect]
     Active Substance: PACLITAXEL
     Indication: ENDOMETRIAL ADENOCARCINOMA
     Dosage: STRENGTH: 6 MG/ML
     Route: 042
     Dates: start: 20191030, end: 20191030

REACTIONS (9)
  - Sense of oppression [Recovered/Resolved]
  - Oxygen saturation decreased [Recovered/Resolved]
  - Respiratory distress [Recovered/Resolved]
  - Hypertension [Recovered/Resolved]
  - Cyanosis [Recovered/Resolved]
  - Flushing [Recovered/Resolved]
  - Off label use [Unknown]
  - Back pain [Recovered/Resolved]
  - Bradycardia [Recovered/Resolved]

NARRATIVE: CASE EVENT DATE: 20191030
